FAERS Safety Report 8762225 (Version 1)
Quarter: 2012Q4

REPORT INFORMATION
  Report Type: 
  Country: US (occurrence: US)
  Receive Date: 20120829
  Receipt Date: 20120829
  Transmission Date: 20130627
  Serious: Yes (Hospitalization, Other)
  Sender: FDA-Public Use
  Company Number: US-PFIZER INC-2012207824

PATIENT
  Age: 50 Year
  Sex: Male
  Weight: 159 kg

DRUGS (6)
  1. REVATIO [Suspect]
     Dosage: 20 mg, 3x/day
  2. COUMADIN [Concomitant]
     Indication: THROMBOSIS
     Dosage: 5 mg, UNK
  3. COUMADIN [Concomitant]
     Dosage: 7.5 mg, UNK
  4. COUMADIN [Concomitant]
     Dosage: 10 mg, UNK
  5. COUMADIN [Concomitant]
     Dosage: 12.5 mg, UNK
  6. COUMADIN [Concomitant]
     Dosage: 7.5 mg, UNK
     Dates: end: 201206

REACTIONS (3)
  - Infection [Recovered/Resolved]
  - Blood glucose increased [Unknown]
  - Weight decreased [Unknown]
